FAERS Safety Report 7952774-0 (Version None)
Quarter: 2011Q4

REPORT INFORMATION
  Report Type: 
  Country: None (occurrence: None)
  Receive Date: 20111201
  Receipt Date: 20111119
  Transmission Date: 20120403
  Serious: Yes (Other)
  Sender: FDA-Public Use
  Company Number: US-BAYER-201028847NA

PATIENT
  Age: 30 Year
  Sex: Female
  Weight: 75 kg

DRUGS (16)
  1. YASMIN [Suspect]
     Dosage: UNK
     Dates: start: 20061201, end: 20070301
  2. COPAXONE [Concomitant]
     Indication: MULTIPLE SCLEROSIS
  3. MULTI-VITAMINS [Concomitant]
     Indication: MITRAL VALVE PROLAPSE
  4. BACLOFEN [Concomitant]
     Indication: MULTIPLE SCLEROSIS
  5. PROVIGIL [Concomitant]
     Indication: MULTIPLE SCLEROSIS
  6. TIZANIDINE HCL [Concomitant]
  7. METFORMIN HCL [Concomitant]
     Indication: POLYCYSTIC OVARIES
  8. XANAX [Concomitant]
     Indication: ANXIETY
  9. YASMIN [Suspect]
     Dosage: UNK UNK, QD
     Route: 048
     Dates: start: 20050401, end: 20060301
  10. IBUPROFEN [Concomitant]
     Indication: PRODUCT USED FOR UNKNOWN INDICATION
  11. ASPIRIN [Concomitant]
     Indication: THROMBOSIS PROPHYLAXIS
  12. YAZ [Suspect]
     Indication: ACNE
     Dosage: UNK UNK, QD
     Route: 048
     Dates: start: 20060401, end: 20070301
  13. YAZ [Suspect]
     Dosage: UNK UNK, QD
     Route: 048
     Dates: start: 20081001, end: 20090401
  14. AMANTADINE HCL [Concomitant]
     Indication: MULTIPLE SCLEROSIS
  15. ASPIRIN [Concomitant]
     Indication: PAIN
     Route: 048
     Dates: start: 19991130
  16. COPATONE [Concomitant]

REACTIONS (5)
  - OEDEMA PERIPHERAL [None]
  - POST THROMBOTIC SYNDROME [None]
  - PAIN IN EXTREMITY [None]
  - HYPOAESTHESIA [None]
  - DEEP VEIN THROMBOSIS [None]
